FAERS Safety Report 8081694-9 (Version None)
Quarter: 2012Q1

REPORT INFORMATION
  Report Type: 
  Country: None (occurrence: None)
  Receive Date: 20120130
  Receipt Date: 20120123
  Transmission Date: 20120608
  Serious: Yes (Other)
  Sender: FDA-Public Use
  Company Number: PHEH2011US04113

PATIENT
  Sex: Female
  Weight: 108 kg

DRUGS (1)
  1. GILENYA [Suspect]
     Indication: RELAPSING-REMITTING MULTIPLE SCLEROSIS
     Dosage: 0.5 MG , QD
     Route: 048
     Dates: start: 20110817, end: 20111214

REACTIONS (5)
  - BLINDNESS TRANSIENT [None]
  - ABNORMAL SENSATION IN EYE [None]
  - VISUAL ACUITY REDUCED [None]
  - VISUAL IMPAIRMENT [None]
  - CONSTIPATION [None]
